FAERS Safety Report 18954462 (Version 2)
Quarter: 2021Q2

REPORT INFORMATION
  Report Type: Report from Study
  Country: IE (occurrence: IE)
  Receive Date: 20210301
  Receipt Date: 20210507
  Transmission Date: 20210717
  Serious: Yes (Hospitalization)
  Sender: FDA-Public Use
  Company Number: IE-PFIZER INC-2021180133

PATIENT
  Weight: 55.7 kg

DRUGS (12)
  1. TAZOCIN [Concomitant]
     Active Substance: PIPERACILLIN SODIUM\TAZOBACTAM SODIUM
     Indication: FEBRILE NEUTROPENIA
     Dosage: 4.5 MG, 4X/DAY (EVERY 6 HRS)
     Dates: start: 20210205, end: 20210209
  2. MOVICOL [Concomitant]
     Active Substance: POLYETHYLENE GLYCOL 3350\POTASSIUM CHLORIDE\SODIUM BICARBONATE\SODIUM CHLORIDE
     Indication: CONSTIPATION
     Dosage: UNK, 3X/DAY (EVERY 8 HRS)
     Dates: start: 20210205, end: 20210206
  3. HEPARIN SALINE [Concomitant]
     Indication: FLUSHING
     Dosage: 2 ML (FREQ: OTHER)
     Dates: start: 20210205, end: 20210206
  4. ORAMORPH SR SUSTAINED RELEASE [Concomitant]
     Active Substance: MORPHINE SULFATE
     Indication: PAIN
     Dosage: 5 MG (FREQ: OTHER)
     Dates: start: 20210202, end: 20210204
  5. COTRIMOXAZOLE [Concomitant]
     Active Substance: SULFAMETHOXAZOLE\TRIMETHOPRIM
     Indication: PROPHYLAXIS
     Dosage: 960 MG (FREQ: OTHER)
     Dates: start: 20210201, end: 20210207
  6. GEMTUZUMAB OZOGAMICIN [Suspect]
     Active Substance: GEMTUZUMAB OZOGAMICIN
     Indication: ACUTE MYELOID LEUKAEMIA
     Dosage: 4.8 MG (FREQUENCY OTHER), CYCLIC (COURSE 1)
     Route: 042
     Dates: start: 20210129, end: 20210129
  7. ONDANSETRON [Concomitant]
     Active Substance: ONDANSETRON
     Indication: NAUSEA
     Dosage: 8 MG (FREQ: OTHER)
     Dates: start: 20210121, end: 20210205
  8. ONDANSETRON [Concomitant]
     Active Substance: ONDANSETRON
     Dosage: 8 MG, 3X/DAY (EVERY 8 HRS)
     Dates: start: 20210206, end: 20210209
  9. GENTAMICIN. [Concomitant]
     Active Substance: GENTAMICIN
     Indication: FEBRILE NEUTROPENIA
     Dosage: 413 MG, 1X/DAY
     Dates: start: 20210205, end: 20210206
  10. MITOXANTRONE HCL [Suspect]
     Active Substance: MITOXANTRONE HYDROCHLORIDE
     Indication: ACUTE MYELOID LEUKAEMIA
     Dosage: 18.8 MG/M2 ONCE DAILY, CYCLIC (COURSE 1)
     Route: 042
     Dates: start: 20210126, end: 20210129
  11. POSACONAZOLE [Concomitant]
     Active Substance: POSACONAZOLE
     Indication: ANTIFUNGAL PROPHYLAXIS
     Dosage: 300 MG, 1X/DAY
     Dates: start: 20210206, end: 20210209
  12. AMPHOTERIN [Concomitant]
     Indication: PROPHYLAXIS
     Dosage: 59 MG (FREQ: OTHER)
     Dates: start: 20210131, end: 20210203

REACTIONS (1)
  - Febrile neutropenia [Recovered/Resolved]

NARRATIVE: CASE EVENT DATE: 20210213
